FAERS Safety Report 9939866 (Version 1)
Quarter: 2014Q1

REPORT INFORMATION
  Report Type: Report from Study
  Country: US (occurrence: US)
  Receive Date: 20140303
  Receipt Date: 20140303
  Transmission Date: 20141002
  Serious: No
  Sender: FDA-Public Use
  Company Number: US-ABBVIE-13P-163-1037807-00

PATIENT
  Age: 56 Year
  Sex: Female

DRUGS (3)
  1. HUMIRA [Suspect]
     Indication: PSORIATIC ARTHROPATHY
     Route: 058
     Dates: start: 201001, end: 201007
  2. HUMIRA [Suspect]
     Route: 058
     Dates: start: 201101
  3. PREDNISONE [Concomitant]
     Indication: PRODUCT USED FOR UNKNOWN INDICATION

REACTIONS (4)
  - Chills [Recovered/Resolved]
  - Oesophageal candidiasis [Recovered/Resolved]
  - Dysphagia [Recovered/Resolved]
  - Pyrexia [Recovered/Resolved]
